FAERS Safety Report 18676579 (Version 7)
Quarter: 2021Q3

REPORT INFORMATION
  Report Type: Report from Study
  Country: US (occurrence: US)
  Receive Date: 20201229
  Receipt Date: 20210729
  Transmission Date: 20211014
  Serious: Yes (Other)
  Sender: FDA-Public Use
  Company Number: US-GLAXOSMITHKLINE-US2020AMR254611

PATIENT
  Sex: Female

DRUGS (5)
  1. NIRAPARIB [Suspect]
     Active Substance: NIRAPARIB
     Indication: FALLOPIAN TUBE CANCER
     Dosage: 200 MG, QD
     Route: 065
     Dates: start: 20201215, end: 20210211
  2. NIRAPARIB [Suspect]
     Active Substance: NIRAPARIB
     Dosage: 200 MG, QD
  3. NIRAPARIB [Suspect]
     Active Substance: NIRAPARIB
     Dosage: 100 MG, QD
     Route: 048
  4. NIRAPARIB [Suspect]
     Active Substance: NIRAPARIB
     Dosage: 100 MG, QD
  5. NIRAPARIB [Suspect]
     Active Substance: NIRAPARIB
     Dosage: 100 MG, QD
     Dates: start: 20210310

REACTIONS (16)
  - Vomiting [Recovering/Resolving]
  - Nausea [Recovering/Resolving]
  - Platelet disorder [Unknown]
  - Fatigue [Not Recovered/Not Resolved]
  - Blood count abnormal [Unknown]
  - Catheter site rash [Recovered/Resolved]
  - Secretion discharge [Recovering/Resolving]
  - Platelet count decreased [Not Recovered/Not Resolved]
  - Dizziness [Recovered/Resolved]
  - Diarrhoea [Recovered/Resolved]
  - Neuropathy peripheral [Unknown]
  - Headache [Recovering/Resolving]
  - Dry mouth [Recovering/Resolving]
  - Insomnia [Recovering/Resolving]
  - Appetite disorder [Recovering/Resolving]
  - Haemoptysis [Unknown]
